FAERS Safety Report 15952082 (Version 2)
Quarter: 2019Q1

REPORT INFORMATION
  Report Type: Spontaneous
  Country: ES (occurrence: ES)
  Receive Date: 20190211
  Receipt Date: 20190318
  Transmission Date: 20190417
  Serious: Yes (Other)
  Sender: FDA-Public Use
  Company Number: ES-ALLERGAN-1905643US

PATIENT
  Sex: Female

DRUGS (1)
  1. BELKYRA [Suspect]
     Active Substance: DEOXYCHOLIC ACID
     Indication: FAT TISSUE INCREASED
     Dosage: 3.2 ML (1.5 UNITS), SINGLE
     Route: 058
     Dates: start: 20181025, end: 20181025

REACTIONS (1)
  - Injection site necrosis [Recovered/Resolved]

NARRATIVE: CASE EVENT DATE: 20181102
